FAERS Safety Report 8836699 (Version 1)
Quarter: 2012Q4

REPORT INFORMATION
  Report Type: Spontaneous
  Country: GB (occurrence: None)
  Receive Date: 20121010
  Receipt Date: 20121010
  Transmission Date: 20130627
  Serious: Yes (Life-Threatening)
  Sender: FDA-Public Use
  Company Number: GB-DEXPHARM-20121300

PATIENT
  Age: 77 Year
  Sex: Female

DRUGS (11)
  1. OMEPRAZOLE [Suspect]
     Dates: start: 20120905
  2. AMITRIPTYLINE HYDROCHLORIDE [Concomitant]
  3. AMLODIPINE [Concomitant]
  4. ASPIRIN [Concomitant]
  5. ATORVASTATIN [Concomitant]
  6. CO-DYDRAMOL [Concomitant]
  7. FERROUS FUMARATE [Concomitant]
  8. IBUPROFEN [Concomitant]
  9. ISPAGHULA HUSK [Concomitant]
  10. LAXIDO [Concomitant]
  11. LISINOPRIL [Concomitant]

REACTIONS (1)
  - Anaphylactic reaction [None]
